FAERS Safety Report 15713247 (Version 1)
Quarter: 2018Q4

REPORT INFORMATION
  Report Type: Spontaneous
  Country: US (occurrence: US)
  Receive Date: 20181212
  Receipt Date: 20181212
  Transmission Date: 20190205
  Serious: No
  Sender: FDA-Public Use
  Company Number: US-ENDO PHARMACEUTICALS INC-2018-035085

PATIENT
  Sex: Male

DRUGS (1)
  1. TESTIM [Suspect]
     Active Substance: TESTOSTERONE
     Indication: PRODUCT USED FOR UNKNOWN INDICATION
     Dosage: UNK UNKNOWN, DAILY
     Route: 062
     Dates: start: 2018

REACTIONS (3)
  - Application site dryness [Unknown]
  - Inappropriate schedule of product administration [Unknown]
  - Application site pruritus [Unknown]

NARRATIVE: CASE EVENT DATE: 2018
